FAERS Safety Report 10231264 (Version 1)
Quarter: 2014Q2

REPORT INFORMATION
  Report Type: Spontaneous
  Country: CA (occurrence: CA)
  Receive Date: 20140611
  Receipt Date: 20140611
  Transmission Date: 20141212
  Serious: Yes (Life-Threatening)
  Sender: FDA-Public Use
  Company Number: CA-GLAXOSMITHKLINE-A1075884A

PATIENT
  Age: 39 Year
  Sex: Female
  Weight: 190 kg

DRUGS (2)
  1. AVAMYS [Suspect]
     Indication: PRODUCT USED FOR UNKNOWN INDICATION
     Dosage: 2SPR SEE DOSAGE TEXT
     Route: 045
  2. AVELOX [Concomitant]

REACTIONS (6)
  - Hypersensitivity [Recovered/Resolved]
  - Lip swelling [Recovered/Resolved]
  - Ocular hyperaemia [Recovered/Resolved]
  - Pruritus [Recovered/Resolved]
  - Sneezing [Recovered/Resolved]
  - Wheezing [Recovered/Resolved]
